FAERS Safety Report 11211535 (Version 3)
Quarter: 2015Q3

REPORT INFORMATION
  Report Type: Spontaneous
  Country: GB (occurrence: GB)
  Receive Date: 20150623
  Receipt Date: 20150824
  Transmission Date: 20151125
  Serious: Yes (Death, Hospitalization, Other)
  Sender: FDA-Public Use
  Company Number: GB-HOSPIRA-2906170

PATIENT
  Sex: Female

DRUGS (2)
  1. WATER FOR INJECTION [Suspect]
     Active Substance: WATER
     Indication: PRODUCT USED FOR UNKNOWN INDICATION
     Dosage: OVER 8 HOURS
     Route: 065
     Dates: start: 20150601
  2. DEFEROXAMINE MESILATE [Suspect]
     Active Substance: DEFEROXAMINE MESYLATE
     Indication: PRODUCT USED FOR UNKNOWN INDICATION
     Dosage: OVER 8 HOURS
     Route: 065
     Dates: start: 20150601

REACTIONS (3)
  - Device related infection [Not Recovered/Not Resolved]
  - Death [Fatal]
  - Unresponsive to stimuli [Not Recovered/Not Resolved]
